FAERS Safety Report 18490730 (Version 1)
Quarter: 2020Q4

REPORT INFORMATION
  Report Type: Spontaneous
  Country: US (occurrence: US)
  Receive Date: 20201111
  Receipt Date: 20201111
  Transmission Date: 20210114
  Serious: Yes (Hospitalization, Other)
  Sender: FDA-Public Use
  Company Number: US-ROCHE-2706987

PATIENT
  Age: 71 Year
  Sex: Female
  Weight: 56.75 kg

DRUGS (11)
  1. PEGASYS [Suspect]
     Active Substance: PEGINTERFERON ALFA-2A
     Indication: MYELOFIBROSIS
     Dosage: THERAPY STATUS: ONGOING: NO
     Route: 058
     Dates: start: 202003, end: 20201005
  2. HYDROCHOROTHIAZIDE [Concomitant]
     Active Substance: HYDROCHLOROTHIAZIDE
  3. LISINOPRIL. [Concomitant]
     Active Substance: LISINOPRIL
     Indication: HYPERTENSION
     Route: 048
  4. ESCITALOPRAM [Concomitant]
     Active Substance: ESCITALOPRAM OXALATE
     Route: 048
     Dates: start: 20201030
  5. ASPIRIN 81 [Concomitant]
     Active Substance: ASPIRIN
     Indication: ESSENTIAL THROMBOCYTHAEMIA
     Route: 048
  6. ESCITALOPRAM [Concomitant]
     Active Substance: ESCITALOPRAM OXALATE
     Route: 048
     Dates: start: 20201030
  7. WARFARIN [Concomitant]
     Active Substance: WARFARIN
     Route: 048
  8. CLONAZEPAM. [Concomitant]
     Active Substance: CLONAZEPAM
  9. VIMPAT [Concomitant]
     Active Substance: LACOSAMIDE
     Indication: SEIZURE
     Route: 048
     Dates: start: 20201022
  10. AMLODIPINE [Concomitant]
     Active Substance: AMLODIPINE BESYLATE
     Route: 048
  11. DILTIAZEM HCL [Concomitant]
     Active Substance: DILTIAZEM HYDROCHLORIDE
     Indication: HYPERTENSION
     Route: 048
     Dates: start: 20201030

REACTIONS (31)
  - Delusion [Unknown]
  - Off label use [Unknown]
  - Pyrexia [Unknown]
  - Rash [Unknown]
  - Constipation [Unknown]
  - Heart rate increased [Unknown]
  - Cognitive disorder [Unknown]
  - Urinary tract infection [Unknown]
  - Confusional state [Unknown]
  - Paranoia [Unknown]
  - Pneumonia [Unknown]
  - Hypoaesthesia [Unknown]
  - Asthenia [Not Recovered/Not Resolved]
  - Weight decreased [Not Recovered/Not Resolved]
  - Paraesthesia [Unknown]
  - Hyperhidrosis [Unknown]
  - Chills [Unknown]
  - Burning sensation [Unknown]
  - Skin lesion [Unknown]
  - Feeling abnormal [Unknown]
  - Hallucination [Unknown]
  - Alopecia [Not Recovered/Not Resolved]
  - Fall [Unknown]
  - Pain in extremity [Unknown]
  - Diarrhoea [Unknown]
  - Intentional product use issue [Unknown]
  - Pruritus [Not Recovered/Not Resolved]
  - White blood cell count increased [Unknown]
  - Mania [Unknown]
  - Conversion disorder [Unknown]
  - Hepatic enzyme increased [Unknown]

NARRATIVE: CASE EVENT DATE: 20201014
